FAERS Safety Report 5226837-7 (Version None)
Quarter: 2007Q1

REPORT INFORMATION
  Report Type: 
  Country: None (occurrence: None)
  Receive Date: 20070130
  Receipt Date: 20070127
  Transmission Date: 20070707
  Serious: Yes (Hospitalization)
  Sender: FDA-Public Use
  Company Number: 220136

PATIENT
  Age: 66 Year
  Sex: Female

DRUGS (6)
  1. AVASTIN [Suspect]
     Indication: COLORECTAL CANCER
     Dosage: 450 MG, INTRAVENOUS
     Route: 042
     Dates: start: 20051019
  2. CAPECITABINE (CAPECITABINE) [Suspect]
     Indication: COLORECTAL CANCER
     Dosage: 3300 MG, QD
     Dates: start: 20051019
  3. OXALIPLATIN [Suspect]
     Indication: COLORECTAL CANCER
     Dosage: 218 MG, INTRAVENOUS
     Route: 042
     Dates: start: 20051019
  4. NEXIUM [Concomitant]
  5. PYRIDOXINE HCL [Concomitant]
  6. METOCLOPRAMIDE (METOCLOPRAMIDE HYDROCHLORIDE) [Concomitant]

REACTIONS (3)
  - ABDOMINAL PAIN [None]
  - ORAL INTAKE REDUCED [None]
  - VOMITING [None]
